FAERS Safety Report 13905296 (Version 2)
Quarter: 2017Q4

REPORT INFORMATION
  Report Type: Report from Study
  Country: LB (occurrence: LB)
  Receive Date: 20170825
  Receipt Date: 20171013
  Transmission Date: 20180320
  Serious: Yes (Death, Hospitalization)
  Sender: FDA-Public Use
  Company Number: PHHY2017LB114623

PATIENT
  Age: 36 Year
  Sex: Female

DRUGS (2)
  1. EXJADE [Suspect]
     Active Substance: DEFERASIROX
     Indication: HAEMOSIDEROSIS
     Dosage: 250 MG, UNK
     Route: 048
  2. AFINITOR [Suspect]
     Active Substance: EVEROLIMUS
     Indication: BREAST CANCER METASTATIC
     Dosage: 10 MG, UNK
     Route: 048

REACTIONS (5)
  - Pyrexia [Unknown]
  - Death [Fatal]
  - General physical health deterioration [Unknown]
  - Serum ferritin increased [Unknown]
  - Fatigue [Unknown]

NARRATIVE: CASE EVENT DATE: 201707
